FAERS Safety Report 15742098 (Version 1)
Quarter: 2018Q4

REPORT INFORMATION
  Report Type: Spontaneous
  Country: US (occurrence: US)
  Receive Date: 20181219
  Receipt Date: 20181219
  Transmission Date: 20190205
  Serious: Yes (Death)
  Sender: FDA-Public Use
  Company Number: None

PATIENT
  Age: 71 Year
  Sex: Female
  Weight: 61.1 kg

DRUGS (1)
  1. OPDIVO [Suspect]
     Active Substance: NIVOLUMAB
     Indication: RECTAL CANCER
     Dosage: ?          OTHER FREQUENCY:ONE TIME;?
     Dates: start: 20181113

REACTIONS (1)
  - Myasthenia gravis [None]

NARRATIVE: CASE EVENT DATE: 20181113
